FAERS Safety Report 24052583 (Version 1)
Quarter: 2024Q3

REPORT INFORMATION
  Report Type: Spontaneous
  Country: DE (occurrence: DE)
  Receive Date: 20240705
  Receipt Date: 20240705
  Transmission Date: 20241017
  Serious: Yes (Other)
  Sender: NOVO NORDISK
  Company Number: DE-DCGMA-24203380

PATIENT
  Age: 64 Year
  Sex: Male

DRUGS (10)
  1. HYDROCHLOROTHIAZIDE [Concomitant]
     Active Substance: HYDROCHLOROTHIAZIDE
     Indication: Coronary artery disease
     Dosage: 50 MG (DURATION: YEARS)
     Route: 048
  2. EZETIMIBE [Concomitant]
     Active Substance: EZETIMIBE
     Indication: Coronary artery disease
     Dosage: 10 MG(DURATION: YEARS)
     Route: 048
  3. OZEMPIC [Suspect]
     Active Substance: SEMAGLUTIDE
     Indication: Diabetes mellitus
     Dosage: UNK(DURATION: WEEKS )
     Route: 058
  4. SITAGLIPTIN [Suspect]
     Active Substance: SITAGLIPTIN
     Indication: Diabetes mellitus
     Dosage: UNK(DURATION: MONTHS)
     Route: 048
  5. RAMIPRIL [Concomitant]
     Active Substance: RAMIPRIL
     Indication: Coronary artery disease
     Dosage: 10 MG(DURATION: YEARS)
     Route: 048
  6. ERTUGLIFLOZIN [Suspect]
     Active Substance: ERTUGLIFLOZIN
     Indication: Diabetes mellitus
     Dosage: UNK (DURATION: WEEKS)
     Route: 048
  7. METOPROLOL [Concomitant]
     Active Substance: METOPROLOL
     Indication: Coronary artery disease
     Dosage: 100 MG(DURATION: YEARS)
     Route: 048
  8. INSULIN GLARGINE [Concomitant]
     Active Substance: INSULIN GLARGINE
     Indication: Diabetes mellitus
     Dosage: DURATION: MONTHS
     Route: 058
  9. ASPIRIN [Concomitant]
     Active Substance: ASPIRIN
     Indication: Coronary artery disease
     Dosage: 100 MG(DURATION: YEARS)
     Route: 048
  10. ROSUVASTATIN [Concomitant]
     Active Substance: ROSUVASTATIN
     Indication: Coronary artery disease
     Dosage: 40 MG(DURATION: YEARS)
     Route: 048

REACTIONS (3)
  - Metabolic disorder [Recovering/Resolving]
  - Pancreatitis [Recovering/Resolving]
  - Sarcopenia [Recovering/Resolving]

NARRATIVE: CASE EVENT DATE: 20240215
